FAERS Safety Report 4281919-1 (Version None)
Quarter: 2004Q1

REPORT INFORMATION
  Report Type: 
  Country: None (occurrence: None)
  Receive Date: 20040128
  Receipt Date: 20040120
  Transmission Date: 20041129
  Serious: No
  Sender: FDA-Public Use
  Company Number: TPA2003A01674

PATIENT
  Sex: Female

DRUGS (1)
  1. ACTOS [Suspect]
     Indication: DIABETES MELLITUS INSULIN-DEPENDENT
     Dosage: PER ORAL
     Route: 048

REACTIONS (4)
  - BLINDNESS UNILATERAL [None]
  - MACULAR OEDEMA [None]
  - VISUAL ACUITY REDUCED [None]
  - WEIGHT INCREASED [None]
